FAERS Safety Report 5590900-1 (Version None)
Quarter: 2007Q4

REPORT INFORMATION
  Report Type: 
  Country: None (occurrence: None)
  Receive Date: 20071214
  Receipt Date: 20070122
  Transmission Date: 20080405
  Serious: Yes (Other)
  Sender: FDA-Public Use
  Company Number: PHEH2007US01233

PATIENT
  Age: 78 Year
  Sex: Male

DRUGS (6)
  1. SANDOSTATIN [Suspect]
     Indication: CARCINOID SYNDROME
     Dosage: 30 MG Q28DAYS, INTRAMUSCULAR
     Route: 030
     Dates: start: 20041123, end: 20070123
  2. DOXEPIN HCL [Concomitant]
  3. ATENOLOL [Concomitant]
  4. MINOXIDIL (MINODIXIL) [Concomitant]
  5. HYDROCHLOROTHIAZIDE [Concomitant]
  6. LUNESTA [Concomitant]

REACTIONS (3)
  - BLOOD GLUCOSE DECREASED [None]
  - DIZZINESS [None]
  - VISUAL DISTURBANCE [None]
